FAERS Safety Report 11392136 (Version 1)
Quarter: 2015Q3

REPORT INFORMATION
  Report Type: Spontaneous
  Country: US (occurrence: None)
  Receive Date: 20150817
  Receipt Date: 20150817
  Transmission Date: 20151125
  Serious: Yes (Hospitalization)
  Sender: FDA-Public Use
  Company Number: 2014P1002066

PATIENT
  Age: 58 Year
  Sex: Male

DRUGS (2)
  1. UNSPECIFIED MEDICATION [Suspect]
     Active Substance: UNSPECIFIED INGREDIENT
  2. TROKENDI XR [Suspect]
     Active Substance: TOPIRAMATE
     Dates: start: 2014

REACTIONS (1)
  - Amnesia [None]

NARRATIVE: CASE EVENT DATE: 2014
